FAERS Safety Report 10525436 (Version 1)
Quarter: 2014Q4

REPORT INFORMATION
  Report Type: Spontaneous
  Country: US (occurrence: None)
  Receive Date: 20141015
  Receipt Date: 20141015
  Transmission Date: 20150528
  Serious: No
  Sender: FDA-Public Use
  Company Number: None

PATIENT
  Age: 52 Year
  Sex: Female
  Weight: 72.58 kg

DRUGS (3)
  1. AMRIX [Suspect]
     Active Substance: CYCLOBENZAPRINE HYDROCHLORIDE
     Indication: INTERVERTEBRAL DISC PROTRUSION
     Dosage: AT BEDTIME, TAKEN BY MOUTH 1 CAPSULE
  2. AMRIX [Suspect]
     Active Substance: CYCLOBENZAPRINE HYDROCHLORIDE
     Indication: PAIN
     Dosage: AT BEDTIME, TAKEN BY MOUTH 1 CAPSULE
  3. AMRIX [Suspect]
     Active Substance: CYCLOBENZAPRINE HYDROCHLORIDE
     Indication: ARTHRITIS
     Dosage: AT BEDTIME, TAKEN BY MOUTH 1 CAPSULE

REACTIONS (10)
  - Fatigue [None]
  - Aggression [None]
  - Crying [None]
  - Frustration [None]
  - Anger [None]
  - Micturition urgency [None]
  - Irritability [None]
  - Restlessness [None]
  - Insomnia [None]
  - Abnormal behaviour [None]

NARRATIVE: CASE EVENT DATE: 20141013
